FAERS Safety Report 10489175 (Version 2)
Quarter: 2014Q4

REPORT INFORMATION
  Report Type: Spontaneous
  Country: FR (occurrence: FR)
  Receive Date: 20141002
  Receipt Date: 20141111
  Transmission Date: 20150528
  Serious: Yes (Hospitalization, Other)
  Sender: FDA-Public Use
  Company Number: FR-ASTRAZENECA-2014SE72522

PATIENT
  Age: 9789 Day
  Sex: Male
  Weight: 83 kg

DRUGS (3)
  1. XEROQUEL [Suspect]
     Active Substance: QUETIAPINE FUMARATE
     Indication: DELIRIUM
     Dosage: PROGRESSIVE DOSAGE, AT DISCHARGE 400 MG TWO DF PER DAY
     Route: 048
     Dates: start: 201404
  2. XEROQUEL [Suspect]
     Active Substance: QUETIAPINE FUMARATE
     Indication: DELIRIUM
     Route: 048
     Dates: start: 20140715, end: 20140808
  3. XEROQUEL [Suspect]
     Active Substance: QUETIAPINE FUMARATE
     Indication: DELIRIUM
     Route: 048
     Dates: start: 201404, end: 201405

REACTIONS (5)
  - Hepatitis [Recovered/Resolved]
  - Hepatocellular injury [Recovered/Resolved]
  - Weight increased [Unknown]
  - Drug dose omission [Unknown]
  - Body mass index increased [Unknown]

NARRATIVE: CASE EVENT DATE: 20140730
